FAERS Safety Report 14676002 (Version 1)
Quarter: 2018Q1

REPORT INFORMATION
  Report Type: Report from Study
  Country: US (occurrence: US)
  Receive Date: 20180323
  Receipt Date: 20180323
  Transmission Date: 20180509
  Serious: Yes (Other)
  Sender: FDA-Public Use
  Company Number: US-VALIDUS PHARMACEUTICALS LLC-US-2013VAL000659

PATIENT

DRUGS (8)
  1. NUTROPIN AQ [Suspect]
     Active Substance: SOMATROPIN
     Dosage: 1.2 MG, 7 IN 1 WEEK
     Route: 058
     Dates: end: 201310
  2. NUTROPIN AQ [Suspect]
     Active Substance: SOMATROPIN
     Indication: BODY HEIGHT BELOW NORMAL
     Dosage: 0.6 MG, QD (10 MG/2 ML)
     Route: 058
  3. NUTROPIN AQ [Suspect]
     Active Substance: SOMATROPIN
     Dosage: 0.6 MG, QD (10 MG/2 ML)
     Route: 058
     Dates: start: 20130227
  4. CALCITRIOL. [Suspect]
     Active Substance: CALCITRIOL
     Indication: PRODUCT USED FOR UNKNOWN INDICATION
     Dosage: 1 DF, QD
     Route: 048
  5. NUTROPIN AQ [Suspect]
     Active Substance: SOMATROPIN
     Dosage: 1.2 MG, 7 IN 1 WEEK
     Route: 058
  6. NUTROPIN AQ [Suspect]
     Active Substance: SOMATROPIN
     Indication: CHRONIC KIDNEY DISEASE
     Dosage: 0.8 MG, QD
     Route: 058
     Dates: start: 201201
  7. NUTROPIN AQ [Suspect]
     Active Substance: SOMATROPIN
     Dosage: 0.6 MG, QD (10 MG/2 ML)
     Route: 058
     Dates: start: 20120208
  8. NUTROPIN AQ [Suspect]
     Active Substance: SOMATROPIN
     Dosage: 0.6 MG, QD (10 MG/2 ML)
     Route: 058
     Dates: start: 20120712

REACTIONS (8)
  - Blood creatinine increased [Unknown]
  - Scar [Unknown]
  - Epistaxis [Not Recovered/Not Resolved]
  - Epiphyses delayed fusion [Unknown]
  - Renal failure [Unknown]
  - Scab [Unknown]
  - Product storage error [Unknown]
  - Cardiac murmur [Not Recovered/Not Resolved]

NARRATIVE: CASE EVENT DATE: 20140807
